FAERS Safety Report 8489699-0 (Version None)
Quarter: 2012Q3

REPORT INFORMATION
  Report Type: 
  Country: None (occurrence: None)
  Receive Date: 20120705
  Receipt Date: 20120627
  Transmission Date: 20120928
  Serious: Yes (Hospitalization)
  Sender: FDA-Public Use
  Company Number: BR-GLAXOSMITHKLINE-A0983237A

PATIENT
  Sex: Male
  Weight: 67 kg

DRUGS (11)
  1. QUETIAPINE FUMARATE [Concomitant]
     Dosage: 200MG TWICE PER DAY
     Route: 048
     Dates: start: 20111001
  2. LOVAZA [Concomitant]
     Dosage: 1000MG THREE TIMES PER DAY
     Route: 048
     Dates: start: 20111001
  3. FLUTICASONE PROPIONATE/SALMETEROL [Suspect]
     Indication: ASTHMA
     Dosage: 1PUFF TWICE PER DAY
     Route: 055
     Dates: start: 19920101
  4. OMEPRAZOLE [Concomitant]
     Dosage: 20MG TWICE PER DAY
     Route: 048
     Dates: start: 20111001
  5. CITALOPRAM HYDROBROMIDE [Concomitant]
     Dosage: 20MG PER DAY
     Route: 048
     Dates: start: 20111001
  6. CLONAZEPAM [Concomitant]
     Dosage: 1MG PER DAY
     Route: 048
     Dates: start: 20111001
  7. LOSARTAN POTASSIUM [Concomitant]
     Dosage: 1TAB PER DAY
     Route: 048
     Dates: start: 20111001
  8. ATORVASTATIN [Concomitant]
     Dosage: 40MG PER DAY
     Route: 048
     Dates: start: 20111001
  9. ALBUTEROL [Suspect]
     Indication: ASTHMA
     Dosage: 3PUFF THREE TIMES PER DAY
     Route: 055
     Dates: start: 19920101
  10. ASPIRIN [Concomitant]
     Dosage: 325MG PER DAY
     Route: 048
     Dates: start: 20111001
  11. CHONDROITIN [Concomitant]
     Dosage: 400MG THREE TIMES PER DAY
     Route: 048
     Dates: start: 20111001

REACTIONS (8)
  - HYPOACUSIS [None]
  - CHOKING [None]
  - SALIVARY HYPERSECRETION [None]
  - BLINDNESS [None]
  - CEREBROVASCULAR ACCIDENT [None]
  - DYSPHAGIA [None]
  - COORDINATION ABNORMAL [None]
  - GAIT DISTURBANCE [None]
